FAERS Safety Report 22053899 (Version 5)
Quarter: 2023Q2

REPORT INFORMATION
  Report Type: Spontaneous
  Country: US (occurrence: US)
  Receive Date: 20230302
  Receipt Date: 20230505
  Transmission Date: 20230721
  Serious: No
  Sender: FDA-Public Use
  Company Number: US-PFIZER INC-PV202300037406

PATIENT
  Age: 75 Year
  Sex: Female
  Weight: 76.2 kg

DRUGS (2)
  1. SOMAVERT [Suspect]
     Active Substance: PEGVISOMANT
     Indication: Acromegaly
     Dosage: 30 MG, 1X/DAY (30 MG ONCE A DAY BY INJECTION AT NIGHT)
  2. SOMAVERT [Suspect]
     Active Substance: PEGVISOMANT
     Dosage: UNK

REACTIONS (3)
  - Drug dose omission by device [Unknown]
  - Syringe issue [Unknown]
  - Needle issue [Unknown]
